FAERS Safety Report 4460692-8 (Version None)
Quarter: 2004Q3

REPORT INFORMATION
  Report Type: 
  Country: None (occurrence: None)
  Receive Date: 20040923
  Receipt Date: 20040913
  Transmission Date: 20050211
  Serious: Yes (Hospitalization)
  Sender: FDA-Public Use
  Company Number: 2004AC00298

PATIENT
  Age: 26 Year
  Sex: Female

DRUGS (1)
  1. MARCAINE [Suspect]
     Indication: ANAESTHESIA
     Dosage: 2 MG/HR IV
     Route: 042

REACTIONS (13)
  - ANAESTHETIC COMPLICATION [None]
  - BLISTER [None]
  - CELL DEATH [None]
  - CULTURE WOUND POSITIVE [None]
  - INFUSION RELATED REACTION [None]
  - INFUSION SITE PAIN [None]
  - INFUSION SITE SWELLING [None]
  - MEDICAL DEVICE COMPLICATION [None]
  - NECROSIS ISCHAEMIC [None]
  - OSTEOMYELITIS [None]
  - PAIN [None]
  - STAPHYLOCOCCAL INFECTION [None]
  - SWELLING [None]
